FAERS Safety Report 6577060-5 (Version None)
Quarter: 2010Q1

REPORT INFORMATION
  Report Type: 
  Country: None (occurrence: None)
  Receive Date: 20100210
  Receipt Date: 20100203
  Transmission Date: 20100710
  Serious: Yes (Hospitalization)
  Sender: FDA-Public Use
  Company Number: CH-BRISTOL-MYERS SQUIBB COMPANY-14967020

PATIENT
  Age: 80 Year
  Sex: Female

DRUGS (2)
  1. BUSPAR [Suspect]
     Indication: PSYCHOMOTOR HYPERACTIVITY
     Route: 048
     Dates: end: 20091119
  2. LEPONEX [Suspect]
     Indication: PSYCHOMOTOR HYPERACTIVITY
     Route: 048
     Dates: end: 20091119

REACTIONS (1)
  - ALTERED STATE OF CONSCIOUSNESS [None]
